FAERS Safety Report 9459826 (Version 1)
Quarter: 2013Q3

REPORT INFORMATION
  Report Type: Spontaneous
  Country: CH (occurrence: CH)
  Receive Date: 20130815
  Receipt Date: 20130815
  Transmission Date: 20140515
  Serious: Yes (Other)
  Sender: FDA-Public Use
  Company Number: CH-PFIZER INC-2013235256

PATIENT
  Age: 32 Year
  Sex: Female

DRUGS (1)
  1. CYTOTEC [Suspect]
     Indication: OFF LABEL USE
     Dosage: 200 UG, SINGLE
     Route: 067
     Dates: start: 20120828, end: 20120828

REACTIONS (4)
  - Gestational diabetes [Unknown]
  - Renal failure [Unknown]
  - Cholestasis of pregnancy [Unknown]
  - Off label use [Unknown]
